FAERS Safety Report 10273640 (Version 1)
Quarter: 2014Q2

REPORT INFORMATION
  Report Type: Spontaneous
  Country: US (occurrence: None)
  Receive Date: 20140630
  Receipt Date: 20140630
  Transmission Date: 20141212
  Serious: Yes (Hospitalization)
  Sender: FDA-Public Use
  Company Number: 2404259

PATIENT
  Age: 78 Year
  Sex: Female

DRUGS (4)
  1. CARBOPLATIN [Suspect]
     Indication: SQUAMOUS CELL CARCINOMA
  2. GEMCITABINE HYDROCHLORIDE [Suspect]
     Indication: SQUAMOUS CELL CARCINOMA
  3. LENALIDOMIDE [Suspect]
     Indication: SQUAMOUS CELL CARCINOMA
  4. DEXAMETHASONE [Suspect]
     Indication: ANTIEMETIC SUPPORTIVE CARE

REACTIONS (5)
  - Strongyloidiasis [None]
  - Mental status changes [None]
  - Aphasia [None]
  - Rash [None]
  - Transaminases increased [None]
